FAERS Safety Report 7641111-7 (Version None)
Quarter: 2011Q3

REPORT INFORMATION
  Report Type: 
  Country: None (occurrence: None)
  Receive Date: 20110728
  Receipt Date: 20110720
  Transmission Date: 20111222
  Serious: Yes (Hospitalization)
  Sender: FDA-Public Use
  Company Number: JP-PFIZER INC-2011148134

PATIENT
  Sex: Female
  Weight: 77 kg

DRUGS (2)
  1. MEDROXYPROGESTERONE ACETATE [Suspect]
     Indication: BREAST CANCER METASTATIC
     Dosage: 400 MG, 3X/DAY
     Route: 048
     Dates: start: 20110531, end: 20110623
  2. ANAVAN SUPPO. [Concomitant]
     Indication: METASTASES TO BONE
     Dosage: 2.5 MG, 1X/DAY
     Route: 054
     Dates: start: 20110324

REACTIONS (2)
  - HEPATIC FAILURE [None]
  - PORTAL VEIN THROMBOSIS [None]
